FAERS Safety Report 25859829 (Version 1)
Quarter: 2025Q3

REPORT INFORMATION
  Report Type: Spontaneous
  Country: JP (occurrence: JP)
  Receive Date: 20250929
  Receipt Date: 20250929
  Transmission Date: 20251021
  Serious: Yes (Other)
  Sender: ROCHE
  Company Number: JP-CHUGAI-2025030254

PATIENT
  Sex: Female

DRUGS (2)
  1. ACTEMRA [Suspect]
     Active Substance: TOCILIZUMAB
     Indication: Rheumatoid arthritis
     Dosage: UNK, ONCE/2WEEKS
     Route: 058
  2. ACTEMRA [Suspect]
     Active Substance: TOCILIZUMAB
     Dosage: UNK, ONCE/3WEEKS
     Route: 058

REACTIONS (3)
  - Compression fracture [Unknown]
  - Diverticulitis [Unknown]
  - Treatment noncompliance [Unknown]
